FAERS Safety Report 20142671 (Version 1)
Quarter: 2021Q4

REPORT INFORMATION
  Report Type: Spontaneous
  Country: US (occurrence: None)
  Receive Date: 20211202
  Receipt Date: 20211202
  Transmission Date: 20220304
  Serious: No
  Sender: FDA-Public Use
  Company Number: US-ROCHE-2815850

PATIENT
  Age: 81 Year
  Sex: Female
  Weight: 91.708 kg

DRUGS (1)
  1. LUCENTIS [Suspect]
     Active Substance: RANIBIZUMAB
     Indication: Neovascular age-related macular degeneration
     Route: 031
     Dates: start: 202010

REACTIONS (5)
  - Vitreous floaters [Recovered/Resolved]
  - Eye irritation [Recovered/Resolved]
  - Pain [Unknown]
  - Memory impairment [Unknown]
  - Discomfort [Unknown]

NARRATIVE: CASE EVENT DATE: 20201001
